FAERS Safety Report 9375317 (Version 3)
Quarter: 2013Q3

REPORT INFORMATION
  Report Type: Spontaneous
  Country: US (occurrence: US)
  Receive Date: 20130628
  Receipt Date: 20130806
  Transmission Date: 20140515
  Serious: No
  Sender: FDA-Public Use
  Company Number: US-PFIZER INC-2013189615

PATIENT
  Age: 39 Year
  Sex: Female

DRUGS (2)
  1. CLINDAMYCIN PHOSPHATE [Suspect]
     Indication: ACNE
     Dosage: UNK, BID
     Route: 061
     Dates: start: 20120212
  2. RETIN A [Concomitant]
     Indication: ACNE
     Dosage: 0.05 %, QHS
     Dates: start: 20120212

REACTIONS (5)
  - Poor quality drug administered [Unknown]
  - Injury [Unknown]
  - Laceration [Unknown]
  - Product quality issue [Unknown]
  - Skin irritation [Recovered/Resolved]
